FAERS Safety Report 5389302-2 (Version None)
Quarter: 2007Q3

REPORT INFORMATION
  Report Type: 
  Country: None (occurrence: None)
  Receive Date: 20070713
  Receipt Date: 20070707
  Transmission Date: 20080115
  Serious: Yes (Hospitalization, Other)
  Sender: FDA-Public Use
  Company Number: 2007SP011026

PATIENT
  Age: 51 Year
  Sex: Female

DRUGS (6)
  1. PEG-INTRON [Suspect]
     Indication: HEPATITIS C
     Dosage: SC
     Route: 058
     Dates: start: 20070521, end: 20070618
  2. RIBAVIRIN [Suspect]
     Indication: HEPATITIS C
     Dosage: PO
     Route: 048
     Dates: start: 20070521, end: 20070618
  3. ATENOLOL [Concomitant]
  4. KLONOPIN [Concomitant]
  5. LAMICTAL [Concomitant]
  6. PAXIL [Concomitant]

REACTIONS (23)
  - ABDOMINAL PAIN UPPER [None]
  - ANGER [None]
  - ANIMAL BITE [None]
  - ANXIETY [None]
  - CONFUSIONAL STATE [None]
  - DEHYDRATION [None]
  - DISTURBANCE IN ATTENTION [None]
  - DYSPNOEA [None]
  - EPISTAXIS [None]
  - FEELING ABNORMAL [None]
  - HYPERVENTILATION [None]
  - HYPOACUSIS [None]
  - HYPOAESTHESIA [None]
  - INSOMNIA [None]
  - MANIA [None]
  - MEMORY IMPAIRMENT [None]
  - MICTURITION FREQUENCY DECREASED [None]
  - ORAL INTAKE REDUCED [None]
  - PALPITATIONS [None]
  - PANIC ATTACK [None]
  - SKIN TURGOR DECREASED [None]
  - SWELLING [None]
  - URTICARIA [None]
